FAERS Safety Report 8027194-3 (Version None)
Quarter: 2011Q4

REPORT INFORMATION
  Report Type: 
  Country: None (occurrence: None)
  Receive Date: 20111130
  Receipt Date: 20110822
  Transmission Date: 20120403
  Serious: Yes (Other)
  Sender: FDA-Public Use
  Company Number: US201107005033

PATIENT
  Age: 73 Year
  Sex: Female
  Weight: 88.905 kg

DRUGS (4)
  1. ZOCOR [Concomitant]
  2. BYETTA [Suspect]
     Indication: TYPE 2 DIABETES MELLITUS
     Dosage: 5 UG, BID, SUBCUTANEOUS 10 UG, BID, SUBCUTANEOUS
     Route: 058
     Dates: start: 20070920, end: 20110517
  3. BYETTA [Suspect]
     Indication: TYPE 2 DIABETES MELLITUS
     Dosage: 5 UG, BID, SUBCUTANEOUS 10 UG, BID, SUBCUTANEOUS
     Route: 058
     Dates: start: 20070816, end: 20070920
  4. VYTORIN (EZETIMIBE, SIMVASTATIN) ONGOING [Concomitant]

REACTIONS (2)
  - PANCREATITIS [None]
  - WEIGHT DECREASED [None]
